FAERS Safety Report 7067436-4 (Version None)
Quarter: 2010Q4

REPORT INFORMATION
  Report Type: 
  Country: None (occurrence: None)
  Receive Date: 20101026
  Receipt Date: 20101026
  Transmission Date: 20110411
  Serious: Yes (Other)
  Sender: FDA-Public Use
  Company Number: None

PATIENT
  Age: 15 Year
  Sex: Female
  Weight: 61.2356 kg

DRUGS (1)
  1. FENTANYL [Suspect]

REACTIONS (7)
  - ABNORMAL BEHAVIOUR [None]
  - ANXIETY [None]
  - CHOKING [None]
  - DYSPNOEA [None]
  - HALLUCINATION, VISUAL [None]
  - HYPERVENTILATION [None]
  - PARANOIA [None]
